FAERS Safety Report 10994864 (Version 1)
Quarter: 2015Q2

REPORT INFORMATION
  Report Type: Spontaneous
  Country: GB (occurrence: GB)
  Receive Date: 20150407
  Receipt Date: 20150407
  Transmission Date: 20150821
  Serious: Yes (Death)
  Sender: FDA-Public Use
  Company Number: GB-ABBVIE-12P-167-0891658-00

PATIENT
  Age: 45 Year
  Sex: Female
  Weight: 104 kg

DRUGS (1)
  1. HUMIRA [Suspect]
     Active Substance: ADALIMUMAB
     Indication: JUVENILE IDIOPATHIC ARTHRITIS
     Dosage: CUMULATIVE DOSE TO FIRST REACTION : 8528.69047 MG
     Route: 058
     Dates: start: 20031001, end: 20111203

REACTIONS (2)
  - Brain injury [Fatal]
  - Seizure [Fatal]

NARRATIVE: CASE EVENT DATE: 20111203
